FAERS Safety Report 5314262-X (Version None)
Quarter: 2007Q2

REPORT INFORMATION
  Report Type: 
  Country: None (occurrence: None)
  Receive Date: 20070501
  Receipt Date: 20070425
  Transmission Date: 20071010
  Serious: Yes (Life-Threatening, Hospitalization)
  Sender: FDA-Public Use
  Company Number: JP-SANOFI-SYNTHELABO-A01200703449

PATIENT
  Sex: Male
  Weight: 60 kg

DRUGS (10)
  1. NITRODERM [Concomitant]
     Indication: ANGINA PECTORIS
     Dosage: 25 MG
     Route: 003
     Dates: start: 20050101
  2. ZANTAC [Concomitant]
     Indication: GASTRIC ULCER
     Route: 048
     Dates: start: 20050101
  3. MEVALOTIN [Concomitant]
     Indication: HYPERLIPIDAEMIA
     Dosage: 10 MG
     Route: 048
     Dates: start: 20050101
  4. MUCODYNE [Concomitant]
     Indication: CHRONIC OBSTRUCTIVE PULMONARY DISEASE
     Route: 048
     Dates: start: 20050101
  5. ERYTHROCIN [Concomitant]
     Indication: CHRONIC OBSTRUCTIVE PULMONARY DISEASE
     Route: 048
     Dates: start: 20050101
  6. ARICEPT D [Concomitant]
     Indication: DEMENTIA
     Dosage: 5 MG
     Route: 048
     Dates: start: 20050101
  7. GRAMALIL [Concomitant]
     Indication: DELIRIUM
     Dosage: 25 MG
     Route: 048
     Dates: start: 20050101
  8. THYRADIN S [Concomitant]
     Indication: HYPOTHYROIDISM
     Dosage: 12.5 MCG
     Route: 048
     Dates: start: 20050101
  9. PLAVIX [Suspect]
     Indication: CEREBRAL INFARCTION
     Route: 048
     Dates: start: 20070224, end: 20070323
  10. BUFFERIN [Concomitant]
     Indication: DRUG USE FOR UNKNOWN INDICATION
     Dosage: 81 MG
     Route: 048
     Dates: end: 20070223

REACTIONS (1)
  - EPILEPSY [None]
